FAERS Safety Report 15734624 (Version 2)
Quarter: 2019Q1

REPORT INFORMATION
  Report Type: Report from Study
  Country: US (occurrence: US)
  Receive Date: 20181218
  Receipt Date: 20190219
  Transmission Date: 20190417
  Serious: Yes (Other)
  Sender: FDA-Public Use
  Company Number: US-AMGEN-USASL2018138831

PATIENT
  Age: 77 Year
  Sex: Male
  Weight: 71.2 kg

DRUGS (3)
  1. REPATHA [Suspect]
     Active Substance: EVOLOCUMAB
     Indication: CORONARY ARTERY STENOSIS
  2. REPATHA [Suspect]
     Active Substance: EVOLOCUMAB
     Indication: HYPERCHOLESTEROLAEMIA
     Dosage: 420 MG, QMO
     Route: 065
  3. REPATHA [Suspect]
     Active Substance: EVOLOCUMAB
     Indication: ATRIAL FIBRILLATION
     Dosage: 140 MG, QMO
     Route: 065

REACTIONS (4)
  - Heart rate irregular [Unknown]
  - Memory impairment [Recovering/Resolving]
  - Sinus disorder [Unknown]
  - Off label use [Unknown]
